FAERS Safety Report 8619862-7 (Version None)
Quarter: 2012Q3

REPORT INFORMATION
  Report Type: 
  Country: None (occurrence: None)
  Receive Date: 20120824
  Receipt Date: 20120817
  Transmission Date: 20120928
  Serious: Yes (Hospitalization, Other)
  Sender: FDA-Public Use
  Company Number: IT-ELI_LILLY_AND_COMPANY-IT201206006342

PATIENT
  Sex: Female

DRUGS (5)
  1. FOLIC ACID [Concomitant]
     Dosage: 0.4 MG, UNKNOWN
     Route: 065
  2. DEXAMETHASONE SODIUM PHOSPHATE [Concomitant]
     Dosage: 4 MG, QD
  3. ALIMTA [Suspect]
     Dosage: 500 UNK, UNK
     Dates: end: 20120701
  4. DOBETIN [Concomitant]
     Dosage: UNK, OTHER
  5. BENZODIAZEPINE RELATED DRUGS [Concomitant]

REACTIONS (6)
  - THROMBOCYTOPENIA [None]
  - ANAEMIA [None]
  - LUNG DISORDER [None]
  - NEOPLASM PROGRESSION [None]
  - HAEMORRHAGE [None]
  - PETECHIAE [None]
